FAERS Safety Report 20963871 (Version 2)
Quarter: 2022Q2

REPORT INFORMATION
  Report Type: Spontaneous
  Country: PL (occurrence: PL)
  Receive Date: 20220615
  Receipt Date: 20220621
  Transmission Date: 20220721
  Serious: Yes (Hospitalization)
  Sender: FDA-Public Use
  Company Number: PL-BAXTER-2022BAX011942

PATIENT
  Age: 5 Year
  Sex: Female

DRUGS (7)
  1. DEXTROSE [Suspect]
     Active Substance: DEXTROSE
     Dosage: UNK
     Route: 042
  2. SODIUM CHLORIDE [Suspect]
     Active Substance: SODIUM CHLORIDE
     Route: 065
  3. HYDROCORTISONE [Concomitant]
     Active Substance: HYDROCORTISONE
     Route: 065
  4. SODIUM [Concomitant]
     Active Substance: SODIUM
     Route: 065
  5. POTASSIUM [Concomitant]
     Active Substance: POTASSIUM
     Route: 065
  6. PHOSPHORUS [Concomitant]
     Active Substance: PHOSPHORUS
     Route: 065
  7. MANNITOL [Concomitant]
     Active Substance: MANNITOL
     Route: 065

REACTIONS (3)
  - Condition aggravated [Unknown]
  - Nervous system disorder [Unknown]
  - Therapeutic product effect incomplete [Unknown]
